FAERS Safety Report 21481410 (Version 1)
Quarter: 2022Q4

REPORT INFORMATION
  Report Type: Report from Study
  Country: US (occurrence: US)
  Receive Date: 20221019
  Receipt Date: 20221019
  Transmission Date: 20230113
  Serious: Yes (Hospitalization)
  Sender: FDA-Public Use
  Company Number: US-BoehringerIngelheim-2020-BI-073008

PATIENT
  Sex: Male

DRUGS (2)
  1. OFEV [Suspect]
     Active Substance: NINTEDANIB
     Indication: Idiopathic pulmonary fibrosis
     Route: 048
     Dates: start: 20200928, end: 202101
  2. OFEV [Suspect]
     Active Substance: NINTEDANIB
     Route: 048
     Dates: end: 202207

REACTIONS (7)
  - Device related infection [Unknown]
  - Oesophageal ulcer [Unknown]
  - Abdominal discomfort [Unknown]
  - Cough [Unknown]
  - Nasopharyngitis [Unknown]
  - Decreased appetite [Unknown]
  - Diarrhoea [Unknown]
